FAERS Safety Report 19055704 (Version 1)
Quarter: 2021Q1

REPORT INFORMATION
  Report Type: Spontaneous
  Country: RU (occurrence: RU)
  Receive Date: 20210325
  Receipt Date: 20210325
  Transmission Date: 20210420
  Serious: Yes (Other)
  Sender: FDA-Public Use
  Company Number: RU-SA-2021SA091432

PATIENT
  Age: 70 Year
  Sex: Female
  Weight: 80 kg

DRUGS (20)
  1. FUROSEMIDE. [Concomitant]
     Active Substance: FUROSEMIDE
     Dosage: 200 MG, QD
  2. METOPROLOL. [Concomitant]
     Active Substance: METOPROLOL
     Dosage: 150 MG
  3. URSOFALK [Suspect]
     Active Substance: URSODIOL
     Indication: TUBERCULOSIS
     Dosage: 500 MG, QD
     Dates: start: 2019
  4. LOSARTAN. [Concomitant]
     Active Substance: LOSARTAN
     Dosage: 12.5 MG
     Dates: start: 2018
  5. AMIODARONE [Concomitant]
     Active Substance: AMIODARONE
     Dosage: 200 MG
     Dates: start: 201804
  6. ISONIAZID. [Suspect]
     Active Substance: ISONIAZID
     Dosage: 300 MG, BID
     Dates: start: 2019
  7. PYRAZINAMIDE. [Suspect]
     Active Substance: PYRAZINAMIDE
     Indication: TUBERCULOSIS
     Dosage: UNK
     Dates: start: 201903
  8. FEBUXOSTAT. [Concomitant]
     Active Substance: FEBUXOSTAT
     Indication: METABOLIC DISORDER
     Dosage: UNK
     Dates: start: 2018
  9. INSULIN [Concomitant]
     Active Substance: INSULIN NOS
     Indication: TYPE 2 DIABETES MELLITUS
     Dosage: 78 U
  10. FUROSEMIDE. [Concomitant]
     Active Substance: FUROSEMIDE
     Indication: DIURETIC THERAPY
     Dosage: 120 MG
     Route: 042
     Dates: start: 2018
  11. AMIODARONE [Concomitant]
     Active Substance: AMIODARONE
     Dosage: 400 MG, QD
     Dates: start: 2020
  12. LEVOFLOXACIN. [Concomitant]
     Active Substance: LEVOFLOXACIN
     Indication: ANTIBIOTIC PROPHYLAXIS
     Dosage: UNK
     Dates: start: 2018
  13. RIFAMPICIN [Suspect]
     Active Substance: RIFAMPIN
     Indication: TUBERCULOSIS
     Dosage: UNK
     Dates: start: 20190717
  14. PYRAZINAMIDE. [Suspect]
     Active Substance: PYRAZINAMIDE
     Dosage: 2000 MG, QD
     Dates: start: 2019
  15. VITAMIN B6 [Suspect]
     Active Substance: PYRIDOXINE HYDROCHLORIDE
     Dosage: 30 MG, BID
     Dates: start: 2019
  16. AMIODARONE [Concomitant]
     Active Substance: AMIODARONE
     Dosage: INCREASED UPTO 300 MG/DAY
     Dates: start: 201809, end: 201811
  17. AMIODARONE [Concomitant]
     Active Substance: AMIODARONE
     Dosage: UNK
     Dates: start: 201902
  18. RIVAROXABAN [Concomitant]
     Active Substance: RIVAROXABAN
     Dosage: 15 MG
     Dates: start: 2018
  19. ISONIAZID. [Suspect]
     Active Substance: ISONIAZID
     Indication: TUBERCULOSIS
     Dosage: UNK
     Dates: start: 201903
  20. FUROSEMIDE. [Concomitant]
     Active Substance: FUROSEMIDE
     Dosage: UPTO 80 MG DAILY

REACTIONS (6)
  - Lethargy [Unknown]
  - Depressed level of consciousness [Recovered/Resolved]
  - Urinary incontinence [Unknown]
  - Ventricular tachycardia [Recovered/Resolved]
  - Confusional state [Unknown]
  - Loss of consciousness [Recovered/Resolved]

NARRATIVE: CASE EVENT DATE: 201903
